FAERS Safety Report 25673172 (Version 3)
Quarter: 2025Q3

REPORT INFORMATION
  Report Type: Spontaneous
  Country: US (occurrence: US)
  Receive Date: 20250813
  Receipt Date: 20250924
  Transmission Date: 20251021
  Serious: Yes (Hospitalization, Other)
  Sender: MDD OPERATIONS
  Company Number: US-MDD US Operations-MDD202508-002932

PATIENT
  Age: 80 Year
  Sex: Female

DRUGS (3)
  1. ONAPGO [Suspect]
     Active Substance: APOMORPHINE HYDROCHLORIDE
     Indication: Parkinson^s disease
     Dosage: PER HOUR CONTINUOUSLY
     Route: 058
     Dates: start: 20250719
  2. ONAPGO [Suspect]
     Active Substance: APOMORPHINE HYDROCHLORIDE
     Dosage: PER HOUR
     Dates: start: 20250718
  3. APOKYN [Suspect]
     Active Substance: APOMORPHINE HYDROCHLORIDE
     Indication: Parkinson^s disease
     Route: 058

REACTIONS (7)
  - Urinary tract infection [Recovering/Resolving]
  - Urinary incontinence [Unknown]
  - Device alarm issue [Unknown]
  - Device kink [Unknown]
  - Device failure [Unknown]
  - Drug dose omission by device [Unknown]
  - Device colour issue [Unknown]

NARRATIVE: CASE EVENT DATE: 20250731
